FAERS Safety Report 11534273 (Version 1)
Quarter: 2015Q3

REPORT INFORMATION
  Report Type: Spontaneous
  Country: US (occurrence: US)
  Receive Date: 20150922
  Receipt Date: 20150922
  Transmission Date: 20151125
  Serious: No
  Sender: FDA-Public Use
  Company Number: US-BEH-2014046752

PATIENT
  Sex: Female

DRUGS (3)
  1. ALBUREX [Suspect]
     Active Substance: ALBUMIN (HUMAN)
     Indication: MYASTHENIA GRAVIS
     Dates: start: 20141114, end: 20141114
  2. ALBUREX [Suspect]
     Active Substance: ALBUMIN (HUMAN)
     Dates: start: 20141115
  3. COUMADIN [Concomitant]
     Active Substance: WARFARIN SODIUM

REACTIONS (4)
  - Chills [Recovered/Resolved]
  - Feeling cold [Recovered/Resolved]
  - Nausea [Recovered/Resolved]
  - Paraesthesia oral [Recovered/Resolved]

NARRATIVE: CASE EVENT DATE: 20141114
